FAERS Safety Report 5496438-4 (Version None)
Quarter: 2007Q4

REPORT INFORMATION
  Report Type: 
  Country: None (occurrence: None)
  Receive Date: 20071025
  Receipt Date: 20071018
  Transmission Date: 20080405
  Serious: Yes (Other)
  Sender: FDA-Public Use
  Company Number: AU-AVENTIS-200719628GDDC

PATIENT
  Age: 71 Year
  Sex: Female

DRUGS (2)
  1. LANTUS [Suspect]
     Route: 058
  2. NOVORAPID [Concomitant]
     Route: 058

REACTIONS (4)
  - ABASIA [None]
  - CONVULSION [None]
  - DYSPNOEA [None]
  - WHEEZING [None]
